FAERS Safety Report 18768473 (Version 1)
Quarter: 2021Q1

REPORT INFORMATION
  Report Type: Spontaneous
  Country: US (occurrence: US)
  Receive Date: 20210121
  Receipt Date: 20210121
  Transmission Date: 20210419
  Serious: Yes (Death)
  Sender: FDA-Public Use
  Company Number: None

PATIENT
  Age: 68 Year
  Sex: Male
  Weight: 73 kg

DRUGS (18)
  1. NEPHRO VITE RX [Concomitant]
     Active Substance: ASCORBIC ACID\BIOTIN\CALCIUM PANTOTHENATE\CYANOCOBALAMIN\FOLIC ACID\NIACINAMIDE\PYRIDOXINE HYDROCHLORIDE\RIBOFLAVIN\THIAMINE MONONITRATE
  2. ACETAMINOPHEN. [Concomitant]
     Active Substance: ACETAMINOPHEN
  3. ESOMEPRAZOLE DELAYED RELEASE [Concomitant]
  4. POTASSIUM CHLORIDE. [Concomitant]
     Active Substance: POTASSIUM CHLORIDE
  5. DEXAMETHASONE IV [Concomitant]
     Active Substance: DEXAMETHASONE
  6. HYDROCERIN [Concomitant]
  7. HYDROMORPHONE INJECTABLE [Concomitant]
  8. SIMETHICONE (DIMETHICONE) [Concomitant]
     Active Substance: DIMETHICONE
  9. BRIMONIDINE 0.2% OPHTHALMIC [Concomitant]
  10. ONDANSETRON IV [Concomitant]
  11. DOCUSATE [Concomitant]
     Active Substance: DOCUSATE
  12. HEPARIN INJECTABLE [Concomitant]
  13. HYDROXYZINE HYDROCHLORIDE. [Concomitant]
     Active Substance: HYDROXYZINE HYDROCHLORIDE
  14. INSULIN ASPART [Concomitant]
     Active Substance: INSULIN ASPART
  15. INSULIN GLARGINE [Concomitant]
     Active Substance: INSULIN GLARGINE
  16. SENNA [Concomitant]
     Active Substance: SENNA LEAF\SENNOSIDES\SENNOSIDES A AND B
  17. ABRAXANE [Suspect]
     Active Substance: PACLITAXEL
     Indication: PANCREATIC CARCINOMA
     Dosage: ?          OTHER FREQUENCY:ONCE WEEKLY;?
     Route: 042
     Dates: start: 20200831
  18. ALBUTEROL INHALATION [Concomitant]
     Active Substance: ALBUTEROL

REACTIONS (1)
  - Death [None]

NARRATIVE: CASE EVENT DATE: 20200910
